FAERS Safety Report 21938074 (Version 1)
Quarter: 2023Q1

REPORT INFORMATION
  Report Type: Report from Study
  Country: US (occurrence: US)
  Receive Date: 20230201
  Receipt Date: 20230201
  Transmission Date: 20230418
  Serious: Yes (Death, Other)
  Sender: FDA-Public Use
  Company Number: US-GILEAD-2023-0613677

PATIENT
  Sex: Male

DRUGS (2)
  1. IDELALISIB [Suspect]
     Active Substance: IDELALISIB
     Indication: Chronic lymphocytic leukaemia
     Dosage: 150 MG, BID
     Route: 048
     Dates: start: 20221223, end: 20230106
  2. MORPHINE [Suspect]
     Active Substance: MORPHINE
     Indication: Pain
     Route: 065

REACTIONS (6)
  - Death [Fatal]
  - Peripheral swelling [Not Recovered/Not Resolved]
  - Dry mouth [Not Recovered/Not Resolved]
  - Dry throat [Not Recovered/Not Resolved]
  - Eating disorder [Not Recovered/Not Resolved]
  - Choking sensation [Not Recovered/Not Resolved]
